FAERS Safety Report 8777329 (Version 1)
Quarter: 2012Q4

REPORT INFORMATION
  Report Type: 
  Country: US (occurrence: US)
  Receive Date: 20120911
  Receipt Date: 20120911
  Transmission Date: 20130627
  Serious: No
  Sender: FDA-Public Use
  Company Number: US-TEVA-357491USA

PATIENT
  Sex: Female
  Weight: 59.02 kg

DRUGS (4)
  1. NUVIGIL [Suspect]
     Indication: SLEEP APNOEA SYNDROME
     Route: 048
     Dates: start: 201208
  2. LISINOPRIL [Concomitant]
  3. PAXIL [Concomitant]
  4. LIPITOR [Concomitant]

REACTIONS (6)
  - Agitation [Recovered/Resolved]
  - Dyspnoea [Recovered/Resolved]
  - Nausea [Not Recovered/Not Resolved]
  - Headache [Not Recovered/Not Resolved]
  - Nasopharyngitis [Not Recovered/Not Resolved]
  - Drug ineffective [Unknown]
